FAERS Safety Report 12803052 (Version 1)
Quarter: 2016Q4

REPORT INFORMATION
  Report Type: Spontaneous
  Country: US (occurrence: US)
  Receive Date: 20161003
  Receipt Date: 20161003
  Transmission Date: 20170207
  Serious: Yes (Other)
  Sender: FDA-Public Use
  Company Number: US-PFIZER INC-2016454891

PATIENT
  Age: 41 Year
  Sex: Female

DRUGS (2)
  1. GABAPENTIN. [Suspect]
     Active Substance: GABAPENTIN
     Indication: LIMB DISCOMFORT
     Dosage: 300 MG, 1X/DAY
  2. GABAPENTIN. [Suspect]
     Active Substance: GABAPENTIN
     Dosage: 400 MG, 3X/DAY

REACTIONS (3)
  - Vision blurred [Not Recovered/Not Resolved]
  - Product use issue [Unknown]
  - Pulmonary oedema [Unknown]
